FAERS Safety Report 17878503 (Version 9)
Quarter: 2025Q1

REPORT INFORMATION
  Report Type: Spontaneous
  Country: BR (occurrence: BR)
  Receive Date: 20200610
  Receipt Date: 20250117
  Transmission Date: 20250409
  Serious: Yes (Disabling, Other)
  Sender: BIOGEN
  Company Number: BR-BIOGEN-2017BI00464944

PATIENT
  Sex: Male
  Weight: 118.2 kg

DRUGS (23)
  1. TECFIDERA [Suspect]
     Active Substance: DIMETHYL FUMARATE
     Indication: Multiple sclerosis
     Dosage: STARTING DOSE
     Route: 050
     Dates: start: 201610
  2. TECFIDERA [Suspect]
     Active Substance: DIMETHYL FUMARATE
     Dosage: MAINTENANCE DOSE
     Route: 050
     Dates: start: 20161001, end: 2021
  3. TECFIDERA [Suspect]
     Active Substance: DIMETHYL FUMARATE
     Route: 050
     Dates: start: 20160201
  4. TECFIDERA [Suspect]
     Active Substance: DIMETHYL FUMARATE
     Route: 050
     Dates: start: 20161001
  5. TECFIDERA [Suspect]
     Active Substance: DIMETHYL FUMARATE
     Dosage: MAINTENANCE DOSE
     Route: 050
     Dates: start: 20161001
  6. TECFIDERA [Suspect]
     Active Substance: DIMETHYL FUMARATE
     Dosage: MAINTENANCE DOSE
     Route: 050
  7. TECFIDERA [Suspect]
     Active Substance: DIMETHYL FUMARATE
     Route: 050
     Dates: start: 201610, end: 20220210
  8. TECFIDERA [Suspect]
     Active Substance: DIMETHYL FUMARATE
     Route: 050
     Dates: start: 201610, end: 20220211
  9. AMITRIPTYLINE HYDROCHLORIDE [Suspect]
     Active Substance: AMITRIPTYLINE HYDROCHLORIDE
     Indication: Anxiety
     Route: 050
  10. ENALAPRIL [Concomitant]
     Active Substance: ENALAPRIL
     Indication: Hypertension
     Route: 050
     Dates: start: 2014
  11. ENALAPRIL [Concomitant]
     Active Substance: ENALAPRIL
     Route: 050
  12. ENALAPRIL [Concomitant]
     Active Substance: ENALAPRIL
     Route: 050
  13. EUPRESSIM [Concomitant]
     Indication: Hypertension
     Route: 050
  14. EUPRESSIM [Concomitant]
     Route: 050
     Dates: start: 1988
  15. HYDROCHLOROTHIAZIDE [Concomitant]
     Active Substance: HYDROCHLOROTHIAZIDE
     Indication: Hypertension
     Route: 050
     Dates: start: 2015
  16. VITAMIN B12 [Concomitant]
     Active Substance: CYANOCOBALAMIN
     Indication: Nutritional supplementation
     Route: 050
     Dates: start: 2017
  17. SUPRA D [Concomitant]
     Indication: Product used for unknown indication
     Route: 050
  18. TENADREN [Concomitant]
     Active Substance: HYDROCHLOROTHIAZIDE\PROPRANOLOL HYDROCHLORIDE
     Indication: Hypertension
     Route: 050
  19. Alektos (Bilastin) [Concomitant]
     Indication: Product used for unknown indication
     Route: 050
  20. Alektos (Bilastin) [Concomitant]
     Route: 050
  21. DULOXETINE [Concomitant]
     Active Substance: DULOXETINE
     Indication: Insomnia
     Route: 050
  22. ADVIL [Concomitant]
     Active Substance: IBUPROFEN
     Indication: Arthralgia
     Route: 050
  23. CONDROFLEX (GLUCOSAMINE SULFATE + SODIUM CHONDROITIN SULFATE) [Concomitant]
     Indication: Arthralgia
     Route: 050

REACTIONS (41)
  - Balance disorder [Not Recovered/Not Resolved]
  - Intervertebral disc disorder [Unknown]
  - Product dose omission issue [Recovered/Resolved]
  - Underdose [Unknown]
  - Flatulence [Not Recovered/Not Resolved]
  - Skin lesion [Not Recovered/Not Resolved]
  - Gait disturbance [Unknown]
  - Asthenia [Not Recovered/Not Resolved]
  - Hypoaesthesia [Recovered/Resolved]
  - Back pain [Not Recovered/Not Resolved]
  - Electric shock sensation [Not Recovered/Not Resolved]
  - Confusional state [Not Recovered/Not Resolved]
  - Bradyphrenia [Not Recovered/Not Resolved]
  - Speech disorder [Not Recovered/Not Resolved]
  - Fungal foot infection [Not Recovered/Not Resolved]
  - Anxiety [Not Recovered/Not Resolved]
  - Astigmatism [Not Recovered/Not Resolved]
  - Paraesthesia [Recovered/Resolved]
  - Urinary incontinence [Not Recovered/Not Resolved]
  - Agitation [Not Recovered/Not Resolved]
  - Limb discomfort [Recovered/Resolved]
  - Aphonia [Recovered/Resolved]
  - Feeling cold [Not Recovered/Not Resolved]
  - Skin tightness [Recovered/Resolved]
  - Stress [Recovered/Resolved]
  - Dysphonia [Not Recovered/Not Resolved]
  - Posture abnormal [Unknown]
  - Joint space narrowing [Not Recovered/Not Resolved]
  - Hyperhidrosis [Not Recovered/Not Resolved]
  - Nervousness [Unknown]
  - Pain [Not Recovered/Not Resolved]
  - Pyrexia [Recovered/Resolved]
  - Skin atrophy [Not Recovered/Not Resolved]
  - Pallor [Not Recovered/Not Resolved]
  - Vitamin D deficiency [Recovered/Resolved]
  - Somnolence [Recovered/Resolved]
  - Skin wound [Unknown]
  - Feeling hot [Recovered/Resolved]
  - Flushing [Recovered/Resolved]
  - Nausea [Recovered/Resolved]
  - Gastrointestinal disorder [Not Recovered/Not Resolved]

NARRATIVE: CASE EVENT DATE: 20160101
